FAERS Safety Report 21205733 (Version 1)
Quarter: 2022Q3

REPORT INFORMATION
  Report Type: Report from Study
  Country: US (occurrence: US)
  Receive Date: 20220812
  Receipt Date: 20220812
  Transmission Date: 20221026
  Serious: No
  Sender: FDA-Public Use
  Company Number: US-KADMON-US-KAD-22-00485

PATIENT
  Age: 63 Year
  Sex: Female

DRUGS (1)
  1. REZUROCK [Suspect]
     Active Substance: BELUMOSUDIL
     Indication: Product used for unknown indication
     Dosage: 200 MILLIGRAM, QD
     Route: 065
     Dates: start: 20211105

REACTIONS (8)
  - Gastrointestinal disorder [Unknown]
  - Gastrointestinal inflammation [Unknown]
  - Gastrooesophageal reflux disease [Recovered/Resolved]
  - Anaemia [Recovering/Resolving]
  - Weight increased [Unknown]
  - Bone pain [Unknown]
  - Arthralgia [Unknown]
  - Drug ineffective [Unknown]

NARRATIVE: CASE EVENT DATE: 20220501
